FAERS Safety Report 5095851-7 (Version None)
Quarter: 2006Q3

REPORT INFORMATION
  Report Type: 
  Country: None (occurrence: None)
  Receive Date: 20060905
  Receipt Date: 20020724
  Transmission Date: 20061208
  Serious: Yes (Other)
  Sender: FDA-Public Use
  Company Number: PHEH2002US06640

PATIENT
  Age: 43 Year
  Sex: Male
  Weight: 92.971 kg

DRUGS (3)
  1. PROZAC [Concomitant]
     Indication: OBSESSIVE-COMPULSIVE DISORDER
     Dosage: 60 MG, QD
     Route: 048
  2. CLOZARIL [Suspect]
     Indication: SCHIZOPHRENIA, UNDIFFERENTIATED TYPE
     Dosage: 100MG QAM, 250MG QHS
     Route: 048
     Dates: start: 19911212, end: 20060818
  3. ZOLOFT [Concomitant]

REACTIONS (6)
  - CONVULSION [None]
  - LEUKOCYTOSIS [None]
  - LYMPHOCYTIC LEUKAEMIA [None]
  - NEUTROPHIL COUNT ABNORMAL [None]
  - NEUTROPHIL COUNT DECREASED [None]
  - WHITE BLOOD CELL COUNT DECREASED [None]
